FAERS Safety Report 5876665-4 (Version None)
Quarter: 2008Q3

REPORT INFORMATION
  Report Type: 
  Country: None (occurrence: None)
  Receive Date: 20080910
  Receipt Date: 20080909
  Transmission Date: 20090109
  Serious: Yes (Hospitalization)
  Sender: FDA-Public Use
  Company Number: DE-EISAI MEDICAL RESEARCH-E2090-00537-CLI-DE

PATIENT
  Sex: Male
  Weight: 95 kg

DRUGS (5)
  1. ZONISAMIDE [Suspect]
     Indication: CONVULSION
     Route: 048
     Dates: start: 20080624, end: 20080101
  2. ZONISAMIDE [Suspect]
     Route: 048
     Dates: start: 20080801, end: 20080810
  3. LAMOTRIGINE [Concomitant]
     Indication: EPILEPSY
     Route: 048
     Dates: start: 20080801
  4. VALPROATE SODIUM [Concomitant]
     Indication: EPILEPSY
     Route: 048
     Dates: start: 20070917
  5. OXCARBAMAZEPIN [Concomitant]
     Indication: EPILEPSY
     Route: 048
     Dates: start: 20020301

REACTIONS (2)
  - MENTAL DISORDER DUE TO A GENERAL MEDICAL CONDITION [None]
  - SUICIDAL IDEATION [None]
